FAERS Safety Report 5773675-2 (Version None)
Quarter: 2008Q2

REPORT INFORMATION
  Report Type: 
  Country: None (occurrence: None)
  Receive Date: 20080616
  Receipt Date: 20080602
  Transmission Date: 20081010
  Serious: Yes (Hospitalization)
  Sender: FDA-Public Use
  Company Number: US-BAYER-200823334NA

PATIENT
  Age: 36 Year
  Sex: Male
  Weight: 92 kg

DRUGS (8)
  1. BETASERON [Suspect]
     Indication: DRUG USE FOR UNKNOWN INDICATION
     Route: 058
  2. HYTRIN [Concomitant]
     Dosage: TOTAL DAILY DOSE: 2 MG
     Route: 048
  3. EFFEXOR [Concomitant]
     Dosage: TOTAL DAILY DOSE: 300 MG
     Route: 048
  4. DITROPAN [Concomitant]
     Dosage: TOTAL DAILY DOSE: 20 MG
     Route: 048
  5. SINGULAIR [Concomitant]
     Route: 048
  6. BACLOFEN [Concomitant]
     Dosage: TOTAL DAILY DOSE: 10 MG
     Route: 048
  7. PROVIGIL [Concomitant]
     Dosage: TOTAL DAILY DOSE: 200 MG
     Route: 048
  8. ABILIFY [Concomitant]
     Dosage: TOTAL DAILY DOSE: 15 MG
     Route: 048

REACTIONS (2)
  - MULTIPLE SCLEROSIS [None]
  - MUSCULAR WEAKNESS [None]
